FAERS Safety Report 21364090 (Version 1)
Quarter: 2022Q3

REPORT INFORMATION
  Report Type: Spontaneous
  Country: CA (occurrence: None)
  Receive Date: 20220922
  Receipt Date: 20220922
  Transmission Date: 20221027
  Serious: Yes (Other)
  Sender: FDA-Public Use
  Company Number: CA-ROCHE-3183212

PATIENT
  Sex: Female

DRUGS (11)
  1. ACTEMRA [Suspect]
     Active Substance: TOCILIZUMAB
     Indication: Rheumatoid arthritis
     Route: 058
  2. ACTEMRA [Suspect]
     Active Substance: TOCILIZUMAB
     Indication: Arthritis
  3. MABTHERA [Suspect]
     Active Substance: RITUXIMAB
     Indication: Systemic lupus erythematosus
     Route: 041
  4. MABTHERA [Suspect]
     Active Substance: RITUXIMAB
     Indication: Rheumatoid arthritis
  5. BETAMETHASONE VALERATE [Concomitant]
     Active Substance: BETAMETHASONE VALERATE
  6. FOLIC ACID [Concomitant]
     Active Substance: FOLIC ACID
     Route: 065
  7. HYDROXYCHLOROQUINE SULFATE [Concomitant]
     Active Substance: HYDROXYCHLOROQUINE SULFATE
     Route: 065
  8. METHOTREXATE [Concomitant]
     Active Substance: METHOTREXATE
     Route: 058
  9. NAPROXEN [Concomitant]
     Active Substance: NAPROXEN
  10. PREDNISONE [Concomitant]
     Active Substance: PREDNISONE
     Route: 065
  11. TACROLIMUS [Concomitant]
     Active Substance: TACROLIMUS
     Route: 065

REACTIONS (5)
  - Drug ineffective [Unknown]
  - Inflammation [Unknown]
  - Joint swelling [Unknown]
  - Musculoskeletal stiffness [Unknown]
  - Treatment failure [Unknown]
